FAERS Safety Report 6956629-X (Version None)
Quarter: 2010Q3

REPORT INFORMATION
  Report Type: 
  Country: None (occurrence: None)
  Receive Date: 20100830
  Receipt Date: 20100804
  Transmission Date: 20110219
  Serious: No
  Sender: FDA-Public Use
  Company Number: US-PFIZER INC-2010098610

PATIENT
  Sex: Female
  Weight: 54 kg

DRUGS (3)
  1. ESTRING [Suspect]
     Indication: HOT FLUSH
     Dosage: FREQUENCY: EVERY 3 MONTHS
     Route: 067
  2. ESTRING [Suspect]
     Indication: VULVOVAGINAL DRYNESS
  3. ESTRING [Suspect]
     Indication: ATROPHIC VULVOVAGINITIS

REACTIONS (5)
  - BOWEL MOVEMENT IRREGULARITY [None]
  - CONSTIPATION [None]
  - DRUG INEFFECTIVE [None]
  - INSOMNIA [None]
  - IRRITABILITY [None]
